FAERS Safety Report 6031618-0 (Version None)
Quarter: 2009Q1

REPORT INFORMATION
  Report Type: 
  Country: None (occurrence: None)
  Receive Date: 20090108
  Receipt Date: 20081230
  Transmission Date: 20090719
  Serious: Yes (Other)
  Sender: FDA-Public Use
  Company Number: CA-ELI_LILLY_AND_COMPANY-CA200812006172

PATIENT
  Age: 74 Year
  Sex: Female

DRUGS (16)
  1. FORTEO [Suspect]
     Indication: OSTEOPOROSIS
     Dosage: 20 UG, DAILY (1/D)
     Dates: start: 20080813
  2. CRESTOR [Concomitant]
  3. ELMIRON [Concomitant]
  4. FERROUS SULFATE TAB [Concomitant]
  5. CARBOCAL D [Concomitant]
  6. VITAMIN B-12 [Concomitant]
  7. VITAMIN C /00008001/ [Concomitant]
  8. PLAVIX [Concomitant]
  9. CITALOPRAM HYDROBROMIDE [Concomitant]
  10. TEMAZEPAM [Concomitant]
  11. QUININE [Concomitant]
  12. HYDROCHLOROTHIAZIDE [Concomitant]
  13. DOCUSATE [Concomitant]
  14. RAMIPRIL [Concomitant]
  15. NITROGLYCERIN [Concomitant]
  16. INDERAL [Concomitant]

REACTIONS (1)
  - CORONARY ARTERY OCCLUSION [None]
